FAERS Safety Report 4521588-6 (Version None)
Quarter: 2004Q4

REPORT INFORMATION
  Report Type: 
  Country: None (occurrence: None)
  Receive Date: 20041206
  Receipt Date: 20041122
  Transmission Date: 20050328
  Serious: Yes (Other)
  Sender: FDA-Public Use
  Company Number: 2004096210

PATIENT
  Sex: Male
  Weight: 90.7194 kg

DRUGS (3)
  1. UNISOM [Suspect]
     Indication: INSOMNIA
     Dosage: 1 TABLET NIGHTLY, ORAL
     Route: 048
     Dates: start: 20010101
  2. ANTIHYPERTENSIVES (ANTIHYPERTENSIVES) [Concomitant]
  3. CHOLESTEROL- AND TRIGLYCERIDE REDUCERS (CHOLESTEROL- AND TRIGLYCERIDE [Concomitant]

REACTIONS (2)
  - CORONARY ARTERY SURGERY [None]
  - INTRACRANIAL ANEURYSM [None]
